FAERS Safety Report 23375993 (Version 1)
Quarter: 2024Q1

REPORT INFORMATION
  Report Type: Other
  Country: US (occurrence: None)
  Receive Date: 20240108
  Receipt Date: 20240108
  Transmission Date: 20240410
  Serious: No
  Sender: FDA-Public Use
  Company Number: US-ROCHE-3485112

PATIENT
  Age: 59 Year
  Sex: Female
  Weight: 49.032 kg

DRUGS (17)
  1. OCREVUS [Suspect]
     Active Substance: OCRELIZUMAB
     Indication: Multiple sclerosis relapse
     Dosage: DATE OF SERVICE: 24/MAR/2022, 07/APR/ 2022, 13/OCT/2022, 13/APR/2023,
     Route: 042
     Dates: start: 2021, end: 20230413
  2. AMPHETAMINE;DEXTROAMPHETAMINE [Concomitant]
  3. BACLOFEN [Concomitant]
     Active Substance: BACLOFEN
  4. BUTALBITAL, ACETAMINOPHEN, AND CAFFEINE [Concomitant]
     Active Substance: ACETAMINOPHEN\BUTALBITAL\CAFFEINE
  5. CLARITIN [Concomitant]
     Active Substance: LORATADINE
  6. CLONAZEPAM [Concomitant]
     Active Substance: CLONAZEPAM
     Route: 048
  7. EMGALITY [Concomitant]
     Active Substance: GALCANEZUMAB-GNLM
  8. ESCITALOPRAM [Concomitant]
     Active Substance: ESCITALOPRAM OXALATE
  9. FLUOXETINE [Concomitant]
     Active Substance: FLUOXETINE HYDROCHLORIDE
  10. GABAPENTIN [Concomitant]
     Active Substance: GABAPENTIN
  11. HYDROCODONE [Concomitant]
     Active Substance: HYDROCODONE
  12. ACETAMINOPHEN [Concomitant]
     Active Substance: ACETAMINOPHEN
  13. LEVETIRACETAM [Concomitant]
     Active Substance: LEVETIRACETAM
  14. PRIMIDONE [Concomitant]
     Active Substance: PRIMIDONE
  15. TYSABRI [Concomitant]
     Active Substance: NATALIZUMAB
  16. CHOLECALCIFEROL [Concomitant]
     Active Substance: CHOLECALCIFEROL
  17. VITAMIN D3 [Concomitant]
     Active Substance: CHOLECALCIFEROL

REACTIONS (9)
  - Herpes zoster [Recovered/Resolved]
  - Immunosuppression [Unknown]
  - Influenza [Recovered/Resolved]
  - Migraine [Unknown]
  - Vomiting [Unknown]
  - Photophobia [Not Recovered/Not Resolved]
  - Tension headache [Not Recovered/Not Resolved]
  - Skin exfoliation [Not Recovered/Not Resolved]
  - Weight decreased [Recovered/Resolved]

NARRATIVE: CASE EVENT DATE: 20230101
